FAERS Safety Report 7122524-9 (Version None)
Quarter: 2010Q4

REPORT INFORMATION
  Report Type: 
  Country: None (occurrence: None)
  Receive Date: 20101112
  Receipt Date: 20101105
  Transmission Date: 20110411
  Serious: Yes (Hospitalization)
  Sender: FDA-Public Use
  Company Number: 2010SP059143

PATIENT
  Sex: Female
  Weight: 2.46 kg

DRUGS (1)
  1. FOLLISTIM [Suspect]
     Indication: IN VITRO FERTILISATION

REACTIONS (3)
  - CAESAREAN SECTION [None]
  - DRUG EXPOSURE DURING PREGNANCY [None]
  - OVARIAN HYPERSTIMULATION SYNDROME [None]
